FAERS Safety Report 5955056-1 (Version None)
Quarter: 2008Q4

REPORT INFORMATION
  Report Type: 
  Country: None (occurrence: None)
  Receive Date: 20081117
  Receipt Date: 20081107
  Transmission Date: 20090506
  Serious: Yes (Hospitalization)
  Sender: FDA-Public Use
  Company Number: B0544505A

PATIENT
  Age: 44 Year
  Sex: Female

DRUGS (5)
  1. CEFUROXIME [Suspect]
     Indication: UPPER RESPIRATORY TRACT INFECTION
     Route: 048
     Dates: start: 20071115
  2. SOLUPRED [Suspect]
     Indication: PHARYNGITIS
     Route: 048
     Dates: start: 20071122
  3. LANZOR [Suspect]
     Indication: PHARYNGITIS
     Route: 048
     Dates: start: 20071122
  4. NICOPATCH [Concomitant]
     Indication: EX-TOBACCO USER
     Route: 062
     Dates: start: 20071113
  5. LEVOTHYROX [Concomitant]
     Indication: AUTOIMMUNE THYROIDITIS
     Route: 065

REACTIONS (3)
  - EYELID OEDEMA [None]
  - PYREXIA [None]
  - URTICARIA [None]
